FAERS Safety Report 11592939 (Version 7)
Quarter: 2016Q4

REPORT INFORMATION
  Report Type: Report from Study
  Country: IT (occurrence: IT)
  Receive Date: 20151005
  Receipt Date: 20161201
  Transmission Date: 20170206
  Serious: Yes (Hospitalization, Other)
  Sender: FDA-Public Use
  Company Number: IT-ROCHE-1641648

PATIENT
  Age: 82 Year
  Sex: Male
  Weight: 70 kg

DRUGS (5)
  1. OMEPRAZOLE. [Concomitant]
     Active Substance: OMEPRAZOLE
     Indication: GASTRITIS
     Route: 048
     Dates: start: 201501
  2. ACETYLSALICYLIC ACID [Concomitant]
     Active Substance: ASPIRIN
     Route: 048
     Dates: start: 2012
  3. DELAPRIL HYDROCHLORIDE/INDAPAMIDE [Concomitant]
     Indication: HYPERTENSION
     Route: 048
     Dates: start: 2012
  4. VEMURAFENIB [Suspect]
     Active Substance: VEMURAFENIB
     Indication: METASTATIC MALIGNANT MELANOMA
     Route: 048
     Dates: start: 20150922, end: 20151001
  5. COBIMETINIB [Suspect]
     Active Substance: COBIMETINIB
     Indication: METASTATIC MALIGNANT MELANOMA
     Route: 048
     Dates: start: 20150922, end: 20151001

REACTIONS (10)
  - Wound [Recovering/Resolving]
  - Syncope [Recovered/Resolved]
  - Macular oedema [Unknown]
  - Decreased appetite [Unknown]
  - Haematemesis [Recovered/Resolved]
  - Visual impairment [Recovered/Resolved]
  - Oesophageal ulcer [Unknown]
  - Dehydration [Recovered/Resolved]
  - Rash [Recovered/Resolved]
  - Vomiting [Recovered/Resolved]

NARRATIVE: CASE EVENT DATE: 20150929
